FAERS Safety Report 25335324 (Version 4)
Quarter: 2025Q4

REPORT INFORMATION
  Report Type: Report from Study
  Country: BR (occurrence: BR)
  Receive Date: 20250520
  Receipt Date: 20251222
  Transmission Date: 20260118
  Serious: Yes (Hospitalization)
  Sender: BIOGEN
  Company Number: BR-BIOGEN-2025BI01311038

PATIENT
  Age: 35 Year
  Sex: Female
  Weight: 69 kg

DRUGS (5)
  1. TYSABRI [Suspect]
     Active Substance: NATALIZUMAB
     Indication: Multiple sclerosis
     Dates: start: 202103, end: 20251205
  2. TYSABRI [Suspect]
     Active Substance: NATALIZUMAB
     Indication: Relapsing-remitting multiple sclerosis
     Dosage: DOSE NOT ASKED. ?THE PATIENT CONTINUES TO USE NATALIZUMAB EVERY 6 WEEKS.
     Dates: start: 20251205
  3. OMEGA 3 [Concomitant]
     Active Substance: CAPSAICIN
     Indication: Pregnancy
     Dosage: DOSE AND FREQUENCY NOT ASKED.
  4. VITAMIN B12 [Concomitant]
     Active Substance: CYANOCOBALAMIN
     Indication: Pregnancy
     Dosage: DOSE AND FREQUENCY NOT ASKED.
  5. VITAMIN B6 [Concomitant]
     Active Substance: PYRIDOXINE HYDROCHLORIDE
     Indication: Pregnancy
     Dosage: DOSE AND FREQUENCY NOT ASKED.

REACTIONS (3)
  - Abortion spontaneous [Recovered/Resolved]
  - Hypercoagulation [Not Recovered/Not Resolved]
  - Maternal exposure during pregnancy [Recovered/Resolved]

NARRATIVE: CASE EVENT DATE: 20240501
